FAERS Safety Report 9541594 (Version 1)
Quarter: 2013Q3

REPORT INFORMATION
  Report Type: Spontaneous
  Country: SE (occurrence: SE)
  Receive Date: 20130923
  Receipt Date: 20130923
  Transmission Date: 20140515
  Serious: Yes (Disabling, Other)
  Sender: FDA-Public Use
  Company Number: SE-ROCHE-1278359

PATIENT
  Sex: Female

DRUGS (1)
  1. AVASTIN [Suspect]
     Indication: COLON CANCER METASTATIC
     Route: 065

REACTIONS (6)
  - Fall [Unknown]
  - Weight decreased [Unknown]
  - Abdominal hernia [Unknown]
  - Pain [Unknown]
  - Fracture [Unknown]
  - Loss of consciousness [Unknown]
